FAERS Safety Report 9867851 (Version 1)
Quarter: 2014Q1

REPORT INFORMATION
  Report Type: Spontaneous
  Country: US (occurrence: None)
  Receive Date: 20140203
  Receipt Date: 20140203
  Transmission Date: 20141002
  Serious: No
  Sender: FDA-Public Use
  Company Number: None

PATIENT
  Sex: 0

DRUGS (1)
  1. VECURONIUM [Suspect]
     Indication: NEUROMUSCULAR BLOCKING THERAPY
     Dosage: WEIGHT BASED DOSING --  INTRAVENOUS
     Route: 042
     Dates: start: 20140101, end: 20140201

REACTIONS (2)
  - Drug effect delayed [None]
  - Drug effect decreased [None]
